FAERS Safety Report 19444666 (Version 1)
Quarter: 2021Q2

REPORT INFORMATION
  Report Type: Spontaneous
  Country: FR (occurrence: FR)
  Receive Date: 20210621
  Receipt Date: 20210621
  Transmission Date: 20210717
  Serious: Yes (Other)
  Sender: FDA-Public Use
  Company Number: FR-MYLANLABS-2021M1035677

PATIENT
  Age: 62 Year
  Sex: Female
  Weight: 66.7 kg

DRUGS (29)
  1. PANTOPRAZOLE MYLAN [Concomitant]
     Active Substance: PANTOPRAZOLE SODIUM
     Dosage: UNK
     Route: 048
  2. ELUDRIL                            /02860401/ [Concomitant]
     Active Substance: CHLORHEXIDINE GLUCONATE\CHLOROBUTANOL
     Dosage: UNK
     Route: 048
  3. LEDERFOLINE [Concomitant]
     Active Substance: LEUCOVORIN CALCIUM
     Dosage: UNK
     Route: 048
  4. OXYNORMORO [Concomitant]
     Active Substance: OXYCODONE HYDROCHLORIDE
     Dosage: UNK
     Route: 048
  5. DEXAMETHASONE. [Suspect]
     Active Substance: DEXAMETHASONE
     Indication: PLASMA CELL MYELOMA
     Dosage: 160 MILLIGRAM, CYCLE (40 MG ON D1, D4, D8, D11 OF C1 THEN 20 MG ON D1, D4, D8, D11 OF C2)
     Route: 042
     Dates: start: 20201113
  6. VELCADE [Suspect]
     Active Substance: BORTEZOMIB
     Indication: PLASMA CELL MYELOMA
     Dosage: 5.2MILLIGRAM/SQ.METER CYCLE, 2,40 MG A J1,J4,J8,J11 DE C1 PUIS 2.2 MG A J1, J4, J8, J11 DE C2
     Route: 042
     Dates: start: 20201113
  7. URAPIDIL STRAGEN [Concomitant]
     Active Substance: URAPIDIL HYDROCHLORIDE
     Dosage: UNK
     Route: 048
  8. ACICLOVIR MYLAN                    /00587301/ [Concomitant]
     Active Substance: ACYCLOVIR
     Dosage: UNK
     Route: 042
  9. NOVORAPID [Concomitant]
     Active Substance: INSULIN ASPART
     Dosage: UNK
     Route: 058
  10. CALCIDOSE                          /00944201/ [Concomitant]
     Active Substance: CALCIUM CARBONATE\CHOLECALCIFEROL
     Dosage: UNK
     Route: 048
  11. SKENAN [Concomitant]
     Active Substance: MORPHINE SULFATE
     Dosage: UNK
     Route: 048
  12. EZETIMIBE MYLAN [Concomitant]
     Active Substance: EZETIMIBE
     Dosage: UNK
     Route: 048
  13. TRULICITY [Concomitant]
     Active Substance: DULAGLUTIDE
     Dosage: UNK
     Route: 058
  14. LEVOTHYROX [Concomitant]
     Active Substance: LEVOTHYROXINE
     Dosage: UNK
     Route: 048
  15. BICARBONATE SODIUM [Concomitant]
     Active Substance: SODIUM BICARBONATE
     Dosage: UNK
     Route: 002
  16. DOLIPRANE [Concomitant]
     Active Substance: ACETAMINOPHEN
     Dosage: UNK
     Route: 048
  17. REVLIMID [Suspect]
     Active Substance: LENALIDOMIDE
     Indication: PLASMA CELL MYELOMA
     Dosage: 1 DOSAGE FORM, QD 25 MG / DAY TO C1 (14 DAYS) THEN 10 MG / DAY TO C2(14 DAYS)
     Route: 048
     Dates: start: 20201113
  18. WELLVONE [Concomitant]
     Active Substance: ATOVAQUONE
     Dosage: UNK
     Route: 048
  19. VALACYCLOVIR [Concomitant]
     Active Substance: VALACYCLOVIR HYDROCHLORIDE
     Dosage: 4 DOSAGE FORM, QD
     Route: 048
  20. DIFFU K [Concomitant]
     Active Substance: POTASSIUM CHLORIDE
     Dosage: UNK
     Route: 048
  21. BACTRIM [Concomitant]
     Active Substance: SULFAMETHOXAZOLE\TRIMETHOPRIM
     Dosage: 3 DOSAGE FORM, QW
     Route: 048
  22. OXYCODONE [Concomitant]
     Active Substance: OXYCODONE
     Dosage: 10 MG LP
     Route: 048
  23. ACTISKENAN [Concomitant]
     Active Substance: MORPHINE SULFATE
     Dosage: UNK
     Route: 048
  24. SETOFILM [Concomitant]
     Active Substance: ONDANSETRON
     Dosage: UNK
     Route: 048
  25. PRIMPERAN [Concomitant]
     Active Substance: METOCLOPRAMIDE HYDROCHLORIDE
     Dosage: UNK
     Route: 048
  26. LOXEN                              /00639802/ [Concomitant]
     Active Substance: NICARDIPINE HYDROCHLORIDE
     Dosage: UNK
     Route: 048
  27. SECTRAL [Concomitant]
     Active Substance: ACEBUTOLOL HYDROCHLORIDE
     Dosage: UNK
     Route: 048
  28. PHOCYTAN [Concomitant]
     Active Substance: .ALPHA.-GLUCOSE-1-PHOSPHATE
     Dosage: UNK
     Route: 041
  29. LOVENOX [Concomitant]
     Active Substance: ENOXAPARIN SODIUM
     Dosage: UNK
     Route: 058

REACTIONS (2)
  - Ischaemic stroke [Recovered/Resolved]
  - Thrombocytopenia [Recovered/Resolved]

NARRATIVE: CASE EVENT DATE: 20201126
